FAERS Safety Report 9319112 (Version 3)
Quarter: 2013Q2

REPORT INFORMATION
  Report Type: Spontaneous
  Country: US (occurrence: US)
  Receive Date: 20130530
  Receipt Date: 20130626
  Transmission Date: 20140414
  Serious: No
  Sender: FDA-Public Use
  Company Number: US-009507513-1305USA010738

PATIENT
  Sex: Female
  Weight: 63.49 kg

DRUGS (1)
  1. NUVARING [Suspect]
     Indication: CONTRACEPTION
     Dosage: 0.015/0.12 MG PER DAY
     Route: 067
     Dates: start: 2011

REACTIONS (2)
  - Vaginal cyst [Not Recovered/Not Resolved]
  - Urethral cyst [Unknown]
